FAERS Safety Report 7889226-2 (Version None)
Quarter: 2011Q4

REPORT INFORMATION
  Report Type: 
  Country: None (occurrence: None)
  Receive Date: 20111103
  Receipt Date: 20111021
  Transmission Date: 20120403
  Serious: Yes (Hospitalization)
  Sender: FDA-Public Use
  Company Number: BR-MERCK-1110BRA00079

PATIENT
  Age: 59 Year
  Sex: Female

DRUGS (13)
  1. ROSUVASTATIN CALCIUM [Concomitant]
     Route: 065
     Dates: start: 20090101
  2. CLOPIDOGREL [Concomitant]
     Route: 065
     Dates: start: 20090101
  3. ATENOLOL [Concomitant]
     Route: 065
  4. SIMVASTATIN [Concomitant]
     Route: 065
     Dates: end: 20090101
  5. GLYBURIDE [Concomitant]
     Route: 065
     Dates: end: 20090101
  6. ASPIRIN [Concomitant]
     Route: 065
     Dates: end: 20090101
  7. HYZAAR [Suspect]
     Route: 065
     Dates: start: 20080101, end: 20090101
  8. METFORMIN [Concomitant]
     Route: 065
     Dates: start: 20090101, end: 20090101
  9. METFORMIN [Concomitant]
     Route: 065
     Dates: start: 20090101
  10. HYZAAR [Suspect]
     Route: 065
     Dates: end: 20080101
  11. ASPIRIN [Concomitant]
     Route: 065
     Dates: start: 20090101
  12. PROPATYL NITRATE [Concomitant]
     Route: 065
     Dates: end: 20080101
  13. GLIMEPIRIDE [Concomitant]
     Route: 065
     Dates: start: 20090101

REACTIONS (9)
  - GLYCOSYLATED HAEMOGLOBIN INCREASED [None]
  - ARTERIAL OCCLUSIVE DISEASE [None]
  - COLD SWEAT [None]
  - CHEST PAIN [None]
  - MITRAL VALVE CALCIFICATION [None]
  - BLOOD PRESSURE INCREASED [None]
  - ELECTROCARDIOGRAM QT INTERVAL ABNORMAL [None]
  - CORONARY ARTERY DISEASE [None]
  - CORONARY ARTERY OCCLUSION [None]
